FAERS Safety Report 4675651-X (Version None)
Quarter: 2005Q2

REPORT INFORMATION
  Report Type: 
  Country: None (occurrence: None)
  Receive Date: 20050527
  Receipt Date: 20050321
  Transmission Date: 20051028
  Serious: Yes (Death, Hospitalization)
  Sender: FDA-Public Use
  Company Number: US-BRISTOL-MYERS SQUIBB COMPANY-12906210

PATIENT
  Age: 77 Year
  Sex: Male

DRUGS (4)
  1. IXABEPILONE [Suspect]
     Indication: NEOPLASM MALIGNANT
     Dosage: PT REC'D ONLY ONE DOSE OF STUDY DRUG.
     Route: 042
     Dates: start: 20050314, end: 20050314
  2. KETOCONAZOLE [Suspect]
     Indication: NEOPLASM MALIGNANT
     Route: 048
     Dates: start: 20050313, end: 20050317
  3. BENADRYL [Concomitant]
     Dates: start: 20050314, end: 20050314
  4. ZANTAC [Concomitant]
     Dates: start: 20050314, end: 20050314

REACTIONS (15)
  - ARRHYTHMIA [None]
  - CARDIO-RESPIRATORY ARREST [None]
  - COMA HEPATIC [None]
  - ELECTROLYTE IMBALANCE [None]
  - FATIGUE [None]
  - FEBRILE NEUTROPENIA [None]
  - HAEMODIALYSIS [None]
  - HEPATIC FAILURE [None]
  - HYPERKALAEMIA [None]
  - HYPOCALCAEMIA [None]
  - HYPOMAGNESAEMIA [None]
  - INFECTION [None]
  - MUCOSAL INFLAMMATION [None]
  - RENAL FAILURE ACUTE [None]
  - THROMBOCYTOPENIA [None]
